FAERS Safety Report 5000914-8 (Version None)
Quarter: 2006Q2

REPORT INFORMATION
  Report Type: 
  Country: None (occurrence: None)
  Receive Date: 20060512
  Receipt Date: 20050414
  Transmission Date: 20061013
  Serious: Yes (Hospitalization)
  Sender: FDA-Public Use
  Company Number: US-MERCK-0504USA02419

PATIENT
  Age: 39 Year
  Sex: Female
  Weight: 70 kg

DRUGS (3)
  1. VIOXX [Suspect]
     Indication: SHOULDER PAIN
     Route: 048
     Dates: start: 20040101, end: 20040101
  2. VIOXX [Suspect]
     Indication: PAIN IN EXTREMITY
     Route: 048
     Dates: start: 20040101, end: 20040101
  3. MOTRIN [Concomitant]
     Route: 065

REACTIONS (3)
  - HYPERSENSITIVITY [None]
  - INJURY [None]
  - KIDNEY INFECTION [None]
